FAERS Safety Report 4350733-0 (Version None)
Quarter: 2004Q2

REPORT INFORMATION
  Report Type: 
  Country: None (occurrence: None)
  Receive Date: 20040427
  Receipt Date: 20040409
  Transmission Date: 20050107
  Serious: Yes (Hospitalization)
  Sender: FDA-Public Use
  Company Number: 6008361

PATIENT
  Age: 68 Year
  Sex: Female

DRUGS (5)
  1. GLUCOPHAGE [Suspect]
     Indication: DIABETES MELLITUS NON-INSULIN-DEPENDENT
     Dosage: ORAL,  FOR YEARS
     Route: 048
     Dates: start: 20040327
  2. COAPROVEL (HYDROCHLOROTHIAZIDE, IRBESARTAN) [Suspect]
     Dosage: ORAL
     Route: 048
     Dates: start: 20040318, end: 20040327
  3. SURGAM (TABLETS) (TIAPROFENIC ACID) [Suspect]
     Indication: SCIATICA
     Dosage: 100 MG, ORAL
     Route: 048
     Dates: start: 20040318, end: 20040327
  4. NOVONORM (REPAGLINIDE) [Concomitant]
  5. MYOLASTAN (TETRAZEPAM) [Concomitant]

REACTIONS (8)
  - ANURIA [None]
  - ASTHENIA [None]
  - ATRIOVENTRICULAR BLOCK [None]
  - ELECTROCARDIOGRAM ABNORMAL [None]
  - HAEMODIALYSIS [None]
  - LACTIC ACIDOSIS [None]
  - RENAL FAILURE ACUTE [None]
  - SCIATICA [None]
